FAERS Safety Report 7618690-9 (Version None)
Quarter: 2011Q3

REPORT INFORMATION
  Report Type: 
  Country: None (occurrence: None)
  Receive Date: 20110718
  Receipt Date: 20110708
  Transmission Date: 20111222
  Serious: Yes (Other)
  Sender: FDA-Public Use
  Company Number: FR-TEVA-289915ISR

PATIENT
  Sex: Female
  Weight: 43 kg

DRUGS (1)
  1. OXALIPLATIN [Suspect]
     Route: 042
     Dates: start: 20110621

REACTIONS (1)
  - LARYNGOSPASM [None]
